FAERS Safety Report 21320965 (Version 4)
Quarter: 2023Q1

REPORT INFORMATION
  Report Type: Spontaneous
  Country: NO (occurrence: NO)
  Receive Date: 20220912
  Receipt Date: 20230228
  Transmission Date: 20230417
  Serious: Yes (Hospitalization, Other)
  Sender: FDA-Public Use
  Company Number: NO-CELLTRION INC.-2022NO014494

PATIENT

DRUGS (13)
  1. RITUXIMAB [Interacting]
     Active Substance: RITUXIMAB
     Indication: Relapsing-remitting multiple sclerosis
     Dosage: 500 MILLIGRAM INFUSIONS EVERY 6 MONTHS
  2. RITUXIMAB [Interacting]
     Active Substance: RITUXIMAB
     Indication: COVID-19
     Dosage: UNK
  3. RITUXIMAB [Interacting]
     Active Substance: RITUXIMAB
     Dosage: 500 MG (EVERY 6 MONTHS)
  4. COMIRNATY [Interacting]
     Active Substance: TOZINAMERAN
     Indication: COVID-19 immunisation
     Route: 042
  5. MOLNUPIRAVIR [Suspect]
     Active Substance: MOLNUPIRAVIR
     Indication: COVID-19
  6. CEFOTAXIME [Suspect]
     Active Substance: CEFOTAXIME SODIUM
     Indication: COVID-19
  7. REMDESIVIR [Suspect]
     Active Substance: REMDESIVIR
     Indication: COVID-19
     Dosage: UNK
  8. PREDNISOLONE [Suspect]
     Active Substance: PREDNISOLONE
     Indication: COVID-19
     Dosage: 50 MG, 1X/DAY
  9. PREDNISOLONE [Suspect]
     Active Substance: PREDNISOLONE
     Dosage: 20-40 MG, DAILY (DAYS 22-28)
  10. SOTROVIMAB [Suspect]
     Active Substance: SOTROVIMAB
     Indication: COVID-19
     Dosage: 500 MG (ADMINISTERED DAY 29)
     Route: 042
  11. SOTROVIMAB [Suspect]
     Active Substance: SOTROVIMAB
     Indication: Viraemia
     Dosage: UNK MILLIGRAM
  12. SOTROVIMAB [Concomitant]
     Active Substance: SOTROVIMAB
     Indication: COVID-19
     Dosage: 500 MILLIGRAM WAS ADMINISTERED ON DAY 29
     Route: 042
  13. SOTROVIMAB [Concomitant]
     Active Substance: SOTROVIMAB
     Indication: Viraemia
     Dosage: UNK

REACTIONS (7)
  - COVID-19 pneumonia [Recovered/Resolved]
  - COVID-19 [Recovered/Resolved]
  - Vaccination failure [Recovered/Resolved]
  - Off label use [Unknown]
  - Drug ineffective for unapproved indication [Unknown]
  - SARS-CoV-2 antibody test negative [Unknown]
  - Drug interaction [Unknown]

NARRATIVE: CASE EVENT DATE: 20220101
